FAERS Safety Report 7109148-4 (Version None)
Quarter: 2010Q4

REPORT INFORMATION
  Report Type: 
  Country: None (occurrence: None)
  Receive Date: 20101117
  Receipt Date: 20101104
  Transmission Date: 20110411
  Serious: Yes (Hospitalization)
  Sender: FDA-Public Use
  Company Number: FR-PFIZER INC-2010146906

PATIENT
  Age: 62 Year
  Sex: Male

DRUGS (6)
  1. CORDARONE [Suspect]
     Indication: ARRHYTHMIA
     Dosage: 200 MG, 1X/DAY
     Route: 048
     Dates: start: 20090901, end: 20100628
  2. NOVORAPID [Suspect]
     Indication: TYPE 1 DIABETES MELLITUS
     Dosage: 10 INTERNATIONAL UNIT(S), 1X/DAY
     Route: 058
  3. TRIATEC [Concomitant]
     Indication: PRODUCT USED FOR UNKNOWN INDICATION
     Dosage: UNK
  4. PREVISCAN [Concomitant]
     Indication: PRODUCT USED FOR UNKNOWN INDICATION
     Dosage: UNK
  5. SOLUPRED [Concomitant]
     Indication: PRODUCT USED FOR UNKNOWN INDICATION
     Dosage: UNK
  6. INSULATARD [Concomitant]
     Indication: PRODUCT USED FOR UNKNOWN INDICATION
     Dosage: UNK

REACTIONS (8)
  - ALVEOLITIS [None]
  - LUNG DISORDER [None]
  - LYMPHOCYTOSIS [None]
  - MYALGIA [None]
  - PERICARDIAL EFFUSION [None]
  - PLEURAL EFFUSION [None]
  - RESPIRATORY ACIDOSIS [None]
  - THYROID NEOPLASM [None]
